FAERS Safety Report 7948926-6 (Version None)
Quarter: 2011Q4

REPORT INFORMATION
  Report Type: 
  Country: None (occurrence: None)
  Receive Date: 20111130
  Receipt Date: 20111127
  Transmission Date: 20120403
  Serious: Yes (Hospitalization)
  Sender: FDA-Public Use
  Company Number: PHBS2007JP17846

PATIENT
  Age: 41 Year
  Sex: Male

DRUGS (5)
  1. CLOMIPRAMINE HYDROCHLORIDE [Suspect]
     Indication: OBSESSIVE-COMPULSIVE DISORDER
     Dosage: 50 MG, QD
  2. CARBAMAZEPINE [Concomitant]
     Indication: OBSESSIVE-COMPULSIVE DISORDER
     Dosage: 50 MG, UNK
  3. VALPROATE SODIUM [Concomitant]
     Indication: OBSESSIVE-COMPULSIVE DISORDER
     Dosage: 600 MG, QD
  4. PEROSPIRONE HYDROCHLORIDE [Concomitant]
     Indication: OBSESSIVE-COMPULSIVE DISORDER
     Dosage: 8 MG, QD
  5. TEPRENONE [Concomitant]
     Indication: OBSESSIVE-COMPULSIVE DISORDER
     Dosage: 150 MG, QD

REACTIONS (28)
  - BLOOD UREA INCREASED [None]
  - PROTEIN TOTAL DECREASED [None]
  - PROTEINURIA [None]
  - EOSINOPHILIA [None]
  - PYREXIA [None]
  - BLOOD SODIUM DECREASED [None]
  - ARTHRALGIA [None]
  - RENAL FAILURE [None]
  - BETA 2 MICROGLOBULIN URINE INCREASED [None]
  - BLOOD IMMUNOGLOBULIN G DECREASED [None]
  - DIARRHOEA [None]
  - BIOPSY KIDNEY ABNORMAL [None]
  - RENAL ATROPHY [None]
  - BLOOD IMMUNOGLOBULIN M DECREASED [None]
  - BLOOD CREATININE INCREASED [None]
  - TUBULOINTERSTITIAL NEPHRITIS [None]
  - BETA-N-ACETYL-D-GLUCOSAMINIDASE INCREASED [None]
  - HAEMATOCRIT DECREASED [None]
  - AZOTAEMIA [None]
  - C-REACTIVE PROTEIN INCREASED [None]
  - DECREASED APPETITE [None]
  - ANURIA [None]
  - LYMPHOCYTE COUNT DECREASED [None]
  - RED BLOOD CELL COUNT DECREASED [None]
  - BLOOD ALBUMIN DECREASED [None]
  - BLOOD CALCIUM DECREASED [None]
  - OLIGURIA [None]
  - HAEMOGLOBIN DECREASED [None]
